FAERS Safety Report 4532193-X (Version None)
Quarter: 2004Q4

REPORT INFORMATION
  Report Type: 
  Country: None (occurrence: None)
  Receive Date: 20041217
  Receipt Date: 20041206
  Transmission Date: 20050328
  Serious: Yes (Hospitalization)
  Sender: FDA-Public Use
  Company Number: 2004239511DE

PATIENT
  Age: 68 Year
  Sex: Male
  Weight: 65 kg

DRUGS (5)
  1. CABERGOLINE [Suspect]
     Indication: OLIVOPONTOCEREBELLAR ATROPHY
     Dosage: 8 MG, ORAL
     Route: 048
     Dates: start: 20030101
  2. CARBAMAZEPINE [Concomitant]
  3. SINEMET [Concomitant]
  4. DONEPEZIL HCL [Concomitant]
  5. DIURETICS (DIURETICS) [Concomitant]

REACTIONS (5)
  - ACUTE PULMONARY OEDEMA [None]
  - DELUSION [None]
  - PLEURAL EFFUSION [None]
  - PSYCHOTIC DISORDER [None]
  - PULMONARY CONGESTION [None]
